FAERS Safety Report 6832990-1 (Version None)
Quarter: 2010Q3

REPORT INFORMATION
  Report Type: 
  Country: None (occurrence: None)
  Receive Date: 20100712
  Receipt Date: 20100601
  Transmission Date: 20110219
  Serious: No
  Sender: FDA-Public Use
  Company Number: US-BIOGENIDEC-2010BI018298

PATIENT
  Age: 45 Year
  Sex: Male

DRUGS (3)
  1. AVONEX [Suspect]
     Indication: MULTIPLE SCLEROSIS
     Route: 030
     Dates: start: 20030507
  2. AVONEX [Suspect]
     Route: 030
     Dates: start: 20040902, end: 20060310
  3. AVONEX [Suspect]
     Route: 030

REACTIONS (1)
  - GAIT DISTURBANCE [None]
